FAERS Safety Report 19012485 (Version 1)
Quarter: 2021Q1

REPORT INFORMATION
  Report Type: Spontaneous
  Country: US (occurrence: US)
  Receive Date: 20210315
  Receipt Date: 20210315
  Transmission Date: 20210420
  Serious: No
  Sender: FDA-Public Use
  Company Number: None

PATIENT
  Age: 48 Year
  Sex: Male
  Weight: 88.45 kg

DRUGS (1)
  1. HYDRALAZINE (HYDRALAZINE HCL 100MG TAB) [Suspect]
     Active Substance: HYDRALAZINE HYDROCHLORIDE
     Indication: HYPERTENSION
     Route: 048
     Dates: start: 20180119, end: 20201030

REACTIONS (3)
  - Angina pectoris [None]
  - Arthralgia [None]
  - Rash [None]

NARRATIVE: CASE EVENT DATE: 20201015
